FAERS Safety Report 4980561-4 (Version None)
Quarter: 2006Q2

REPORT INFORMATION
  Report Type: 
  Country: None (occurrence: None)
  Receive Date: 20060424
  Receipt Date: 20041202
  Transmission Date: 20061013
  Serious: Yes (Hospitalization)
  Sender: FDA-Public Use
  Company Number: US-MERCK-0412USA00644

PATIENT
  Age: 45 Year
  Sex: Male
  Weight: 65 kg

DRUGS (10)
  1. VIOXX [Suspect]
     Indication: HEADACHE
     Route: 048
     Dates: start: 20001001, end: 20040801
  2. VIOXX [Suspect]
     Route: 048
     Dates: start: 20000101, end: 20040801
  3. VIOXX [Suspect]
     Indication: INTERVERTEBRAL DISC PROTRUSION
     Route: 048
     Dates: start: 20001001, end: 20040801
  4. VIOXX [Suspect]
     Route: 048
     Dates: start: 20000101, end: 20040801
  5. PRILOSEC [Concomitant]
     Route: 048
     Dates: start: 20000101
  6. IBUPROFEN [Concomitant]
     Route: 065
  7. [THERAPY UNSPECIFIED] [Concomitant]
     Route: 065
     Dates: start: 20000101
  8. ASPIRIN [Concomitant]
     Route: 065
  9. VITAMINS (UNSPECIFIED) [Concomitant]
     Route: 065
  10. TAGAMET [Concomitant]
     Route: 065

REACTIONS (29)
  - BLOOD CHOLESTEROL INCREASED [None]
  - CERVICAL SPINAL STENOSIS [None]
  - CERVICOBRACHIAL SYNDROME [None]
  - CORONARY ARTERY DISEASE [None]
  - CORONARY ARTERY OCCLUSION [None]
  - DIABETES MELLITUS [None]
  - DIZZINESS [None]
  - DRUG EFFECT DECREASED [None]
  - DYSPEPSIA [None]
  - EPIGASTRIC DISCOMFORT [None]
  - ERUCTATION [None]
  - FATIGUE [None]
  - GASTRITIS [None]
  - GASTROOESOPHAGEAL REFLUX DISEASE [None]
  - HERNIA HIATUS REPAIR [None]
  - HYPOGLYCAEMIA [None]
  - INTERVERTEBRAL DISC DISORDER [None]
  - INTERVERTEBRAL DISC PROTRUSION [None]
  - MYOCARDIAL INFARCTION [None]
  - OESOPHAGEAL ULCER [None]
  - OESOPHAGITIS [None]
  - OESOPHAGOGASTRIC FUNDOPLASTY [None]
  - PEPTIC ULCER [None]
  - RADICULOPATHY [None]
  - SPINAL COLUMN STENOSIS [None]
  - SPINAL OSTEOARTHRITIS [None]
  - TACHYCARDIA [None]
  - TACHYCARDIA PAROXYSMAL [None]
  - VENTRICULAR TACHYCARDIA [None]
